FAERS Safety Report 6850837-4 (Version None)
Quarter: 2010Q3

REPORT INFORMATION
  Report Type: 
  Country: None (occurrence: None)
  Receive Date: 20100716
  Receipt Date: 20071221
  Transmission Date: 20110219
  Serious: No
  Sender: FDA-Public Use
  Company Number: US-PFIZER INC-2007089854

PATIENT
  Age: 35 Year
  Sex: Male
  Weight: 81.8 kg

DRUGS (2)
  1. CHANTIX [Suspect]
     Indication: SMOKING CESSATION THERAPY
     Dates: start: 20070801, end: 20070901
  2. ZOLPIDEM TARTRATE [Concomitant]
     Indication: SLEEP DISORDER

REACTIONS (1)
  - HYPERLIPIDAEMIA [None]
